FAERS Safety Report 8062010-5 (Version None)
Quarter: 2012Q1

REPORT INFORMATION
  Report Type: 
  Country: None (occurrence: None)
  Receive Date: 20120117
  Receipt Date: 20120103
  Transmission Date: 20120608
  Serious: Yes (Hospitalization)
  Sender: FDA-Public Use
  Company Number: UTC-013476

PATIENT
  Age: 46 Year
  Sex: Female
  Weight: 84.5 kg

DRUGS (7)
  1. TYVASO [Suspect]
     Indication: CONNECTIVE TISSUE DISORDER
     Dosage: 72 MCG (18 MCG, 4 IN 1 D), INHALATION, 216 MCG (54 MCG, 4 IN 1 D), INHALATION
     Route: 055
     Dates: start: 20110615
  2. TYVASO [Suspect]
     Indication: COR PULMONALE CHRONIC
     Dosage: 72 MCG (18 MCG, 4 IN 1 D), INHALATION, 216 MCG (54 MCG, 4 IN 1 D), INHALATION
     Route: 055
     Dates: start: 20110615
  3. TYVASO [Suspect]
     Indication: CONNECTIVE TISSUE DISORDER
     Dosage: 72 MCG (18 MCG, 4 IN 1 D), INHALATION, 216 MCG (54 MCG, 4 IN 1 D), INHALATION
     Route: 055
     Dates: start: 20110304
  4. TYVASO [Suspect]
     Indication: COR PULMONALE CHRONIC
     Dosage: 72 MCG (18 MCG, 4 IN 1 D), INHALATION, 216 MCG (54 MCG, 4 IN 1 D), INHALATION
     Route: 055
     Dates: start: 20110304
  5. DIURETICS (DIURETICS) [Concomitant]
  6. REVATIO [Concomitant]
  7. TYVASO [Suspect]

REACTIONS (5)
  - URINARY TRACT INFECTION [None]
  - FURUNCLE [None]
  - SEPSIS [None]
  - BLOOD PRESSURE DECREASED [None]
  - KIDNEY INFECTION [None]
